FAERS Safety Report 8406198-2 (Version None)
Quarter: 2012Q2

REPORT INFORMATION
  Report Type: 
  Country: None (occurrence: None)
  Receive Date: 20120529
  Receipt Date: 20070612
  Transmission Date: 20120825
  Serious: Yes (Other)
  Sender: FDA-Public Use
  Company Number: JP-2012-12453

PATIENT
  Age: 60 Year
  Sex: Female

DRUGS (1)
  1. PLETAL [Suspect]

REACTIONS (3)
  - INFARCTION [None]
  - BLOOD PRESSURE DECREASED [None]
  - DIZZINESS [None]
